FAERS Safety Report 15821515 (Version 1)
Quarter: 2019Q1

REPORT INFORMATION
  Report Type: Spontaneous
  Country: US (occurrence: US)
  Receive Date: 20190113
  Receipt Date: 20190113
  Transmission Date: 20190417
  Serious: Yes (Life-Threatening)
  Sender: FDA-Public Use
  Company Number: None

PATIENT
  Age: 67 Year
  Sex: Male
  Weight: 94.5 kg

DRUGS (5)
  1. CRESTOR [Concomitant]
     Active Substance: ROSUVASTATIN CALCIUM
  2. RAMIPRIL. [Concomitant]
     Active Substance: RAMIPRIL
  3. AMLODIPHINE [Suspect]
     Active Substance: AMLODIPINE BESYLATE
     Indication: HYPERTENSION
     Dosage: ?          QUANTITY:1 TABLET(S);?
     Route: 048
     Dates: start: 20180101, end: 20190102
  4. CARVEDILOL. [Concomitant]
     Active Substance: CARVEDILOL
  5. COQ10 [Concomitant]
     Active Substance: UBIDECARENONE

REACTIONS (3)
  - Feeling abnormal [None]
  - Thinking abnormal [None]
  - Deafness [None]

NARRATIVE: CASE EVENT DATE: 20190102
